FAERS Safety Report 4850573-X (Version None)
Quarter: 2005Q4

REPORT INFORMATION
  Report Type: 
  Country: None (occurrence: None)
  Receive Date: 20051208
  Receipt Date: 20051208
  Transmission Date: 20060501
  Serious: Yes (Hospitalization)
  Sender: FDA-Public Use
  Company Number: None

PATIENT
  Age: 54 Year
  Sex: Male
  Weight: 128.8216 kg

DRUGS (8)
  1. FLEET ACCU PREP [Suspect]
     Indication: COLONOSCOPY
     Dosage: 45 ML;Q12H: PO
     Route: 048
     Dates: start: 20050925, end: 20050926
  2. QUINAPRIL [Concomitant]
  3. ATENOLOL [Concomitant]
  4. HUMALOG [Concomitant]
  5. LANTUS [Concomitant]
  6. AVANDIA [Concomitant]
  7. HYDROCODONE [Concomitant]
  8. ATIVAN [Concomitant]

REACTIONS (2)
  - CHOLECYSTECTOMY [None]
  - HEPATIC NEOPLASM MALIGNANT [None]
